FAERS Safety Report 5854599-9 (Version None)
Quarter: 2008Q3

REPORT INFORMATION
  Report Type: 
  Country: None (occurrence: None)
  Receive Date: 20080822
  Receipt Date: 20071016
  Transmission Date: 20090109
  Serious: No
  Sender: FDA-Public Use
  Company Number: US-ABBOTT-07P-163-0421272-00

PATIENT
  Sex: Female
  Weight: 58.566 kg

DRUGS (7)
  1. SYNTHROID [Suspect]
     Indication: AUTOIMMUNE THYROIDITIS
     Route: 048
     Dates: start: 20070601
  2. SYNTHROID [Suspect]
     Dates: end: 20060101
  3. SYNTHROID [Suspect]
     Route: 048
     Dates: start: 20060101, end: 20070601
  4. SYNTHROID [Suspect]
     Route: 048
     Dates: start: 20070601
  5. ACEBUTOLOL [Concomitant]
     Indication: VENTRICULAR EXTRASYSTOLES
     Route: 048
  6. CLOPIDOGREL [Concomitant]
     Indication: TRANSIENT ISCHAEMIC ATTACK
     Route: 048
     Dates: start: 19980101
  7. TIMOLOL MALEATE [Concomitant]
     Indication: GLAUCOMA
     Route: 047
     Dates: start: 20071001

REACTIONS (3)
  - BALANCE DISORDER [None]
  - DIZZINESS [None]
  - HYPERTHYROIDISM [None]
